FAERS Safety Report 8824330 (Version 1)
Quarter: 2012Q4

REPORT INFORMATION
  Report Type: 
  Country: TW (occurrence: TW)
  Receive Date: 20121004
  Receipt Date: 20121004
  Transmission Date: 20130627
  Serious: Yes (Other)
  Sender: FDA-Public Use
  Company Number: TW-AMGEN-TWNSP2012062045

PATIENT
  Age: 36 Year
  Sex: Male

DRUGS (6)
  1. ENBREL [Suspect]
     Indication: PSORIASIS
     Dosage: 50 mg, 2x/week
     Route: 058
     Dates: start: 201106, end: 201109
  2. ENBREL [Suspect]
     Dosage: 25 mg, 2x/week
     Route: 058
     Dates: start: 201109, end: 201202
  3. HUMIRA [Suspect]
     Indication: PSORIASIS
     Dosage: 40 mg, every two week
     Route: 058
     Dates: start: 20120416, end: 20120611
  4. DAIVOBET [Concomitant]
     Indication: PSORIASIS
     Dosage: UNK
     Route: 061
  5. DERMOVATE [Concomitant]
     Indication: PSORIASIS
     Dosage: UNK
     Route: 061
  6. ELOMET [Concomitant]
     Indication: PSORIASIS
     Dosage: UNK
     Route: 061

REACTIONS (2)
  - Retinal vein occlusion [Recovered/Resolved with Sequelae]
  - Drug ineffective [Unknown]
